FAERS Safety Report 20701036 (Version 1)
Quarter: 2022Q2

REPORT INFORMATION
  Report Type: Spontaneous
  Country: GB (occurrence: GB)
  Receive Date: 20220412
  Receipt Date: 20220412
  Transmission Date: 20220720
  Serious: Yes (Disabling)
  Sender: FDA-Public Use
  Company Number: GB-MHRA-MED-202204051428451470-7M4O3

PATIENT
  Age: 52 Year
  Sex: Female
  Weight: 90 kg

DRUGS (6)
  1. METRONIDAZOLE [Suspect]
     Active Substance: METRONIDAZOLE
     Indication: Pelvic infection
     Dosage: 400MG THREE TIMES A DAY
     Route: 065
     Dates: start: 20220331
  2. METRONIDAZOLE [Suspect]
     Active Substance: METRONIDAZOLE
     Dosage: DOSE RE-INTRODUCED
     Route: 065
  3. CLARITHROMYCIN [Suspect]
     Active Substance: CLARITHROMYCIN
     Indication: Pelvic infection
     Dosage: 400MG THREE TIMES A DAY
     Route: 065
     Dates: start: 20220331
  4. CLARITHROMYCIN [Suspect]
     Active Substance: CLARITHROMYCIN
     Dosage: DOSE RE-INTRODUCED
     Route: 065
  5. LANSOPRAZOLE [Suspect]
     Active Substance: LANSOPRAZOLE
     Indication: Pelvic infection
     Dosage: 400MG THREE TIMES A DAY
     Route: 065
     Dates: start: 20220331
  6. LANSOPRAZOLE [Suspect]
     Active Substance: LANSOPRAZOLE
     Dosage: DOSE RE-INTRODUCED
     Route: 065

REACTIONS (2)
  - Aphasia [Recovering/Resolving]
  - Confusional state [Recovering/Resolving]

NARRATIVE: CASE EVENT DATE: 20220403
